FAERS Safety Report 6520692-0 (Version None)
Quarter: 2009Q4

REPORT INFORMATION
  Report Type: 
  Country: None (occurrence: None)
  Receive Date: 20091229
  Receipt Date: 20091223
  Transmission Date: 20100525
  Serious: Yes (Death, Life-Threatening, Hospitalization)
  Sender: FDA-Public Use
  Company Number: FR-MERCK-0912FRA00077

PATIENT
  Age: 78 Year
  Sex: Male

DRUGS (10)
  1. PRIMAXIN [Suspect]
     Indication: INFECTION
     Route: 042
     Dates: start: 20090926, end: 20091018
  2. PRIMAXIN [Suspect]
     Route: 042
     Dates: start: 20091107, end: 20091107
  3. CIPROFLOXACIN HYDROCHLORIDE [Suspect]
     Indication: INFECTION
     Route: 042
     Dates: start: 20090921, end: 20091001
  4. CIPROFLOXACIN HYDROCHLORIDE [Suspect]
     Route: 042
     Dates: start: 20091029, end: 20091107
  5. CLOMIPRAMINE HYDROCHLORIDE [Suspect]
     Indication: DEPRESSION
     Route: 048
     Dates: start: 20091103, end: 20091108
  6. ASPIRIN LYSINE [Suspect]
     Route: 048
     Dates: start: 20091103, end: 20091107
  7. RANITIDINE HYDROCHLORIDE [Suspect]
     Route: 048
     Dates: start: 20090929, end: 20091109
  8. FUROSEMIDE [Suspect]
     Route: 048
     Dates: end: 20091112
  9. BROMAZEPAM [Suspect]
     Route: 048
     Dates: start: 20091104, end: 20091109
  10. LACTULOSE [Suspect]
     Route: 048
     Dates: start: 20091104, end: 20091107

REACTIONS (1)
  - TOXIC EPIDERMAL NECROLYSIS [None]
